FAERS Safety Report 6453431-2 (Version None)
Quarter: 2009Q4

REPORT INFORMATION
  Report Type: 
  Country: None (occurrence: None)
  Receive Date: 20091124
  Receipt Date: 20091117
  Transmission Date: 20100525
  Serious: Yes (Other)
  Sender: FDA-Public Use
  Company Number: GB-ROCHE-669188

PATIENT
  Age: 15 Year
  Sex: Male

DRUGS (1)
  1. TAMIFLU [Suspect]
     Dosage: DOSE FORM: LOCAL NHS PANDEMIC COLLECTION POINT
     Route: 065
     Dates: start: 20091108, end: 20091110

REACTIONS (3)
  - AKATHISIA [None]
  - HALLUCINATIONS, MIXED [None]
  - NASOPHARYNGITIS [None]
